FAERS Safety Report 8958591 (Version 1)
Quarter: 2012Q4

REPORT INFORMATION
  Report Type: Spontaneous
  Country: US (occurrence: None)
  Receive Date: 20121205
  Receipt Date: 20121205
  Transmission Date: 20130627
  Serious: Yes (Other)
  Sender: FDA-Public Use
  Company Number: None

PATIENT
  Age: 29 Year
  Sex: Female
  Weight: 50.8 kg

DRUGS (2)
  1. REMICADE [Suspect]
     Indication: ULCERATIVE COLITIS
     Dates: start: 20121010
  2. LIALDA [Suspect]
     Indication: ULCERATIVE COLITIS
     Route: 048
     Dates: start: 201107

REACTIONS (2)
  - Abortion spontaneous [None]
  - Exposure during pregnancy [None]
